FAERS Safety Report 16297554 (Version 1)
Quarter: 2019Q2

REPORT INFORMATION
  Report Type: Spontaneous
  Country: US (occurrence: US)
  Receive Date: 20190510
  Receipt Date: 20190510
  Transmission Date: 20190711
  Serious: Yes (Hospitalization)
  Sender: FDA-Public Use
  Company Number: US-MYLANLABS-2019M1044629

PATIENT
  Age: 67 Year
  Sex: Male

DRUGS (8)
  1. CALCIUM [Concomitant]
     Active Substance: CALCIUM
     Indication: OSTEOPOROSIS
     Dosage: TWO DAYS
     Route: 065
  2. DEXAMETHASONE. [Suspect]
     Active Substance: DEXAMETHASONE
     Indication: MULTIPLE SCLEROSIS
     Route: 065
  3. CALCITONIN SALMON. [Suspect]
     Active Substance: CALCITONIN SALMON
     Indication: CUTANEOUS CALCIFICATION
     Route: 065
  4. ZOLEDRONIC ACID [Suspect]
     Active Substance: ZOLEDRONIC ACID
     Indication: CUTANEOUS CALCIFICATION
     Route: 065
  5. VITAMIN D                          /07503901/ [Concomitant]
     Active Substance: VITAMIN D NOS
     Indication: OSTEOPOROSIS
     Route: 065
  6. PAMIDRONATE [Suspect]
     Active Substance: PAMIDRONATE DISODIUM
     Indication: CUTANEOUS CALCIFICATION
     Dosage: ADMINISTERED ON DAY 2
     Route: 065
  7. COPAXONE [Concomitant]
     Active Substance: GLATIRAMER ACETATE
     Indication: PRODUCT USED FOR UNKNOWN INDICATION
     Dosage: THREE TIMES PER WEEK
     Route: 065
  8. VITAMIN D3 [Concomitant]
     Active Substance: CHOLECALCIFEROL
     Indication: OSTEOPOROSIS
     Dosage: FOR OVER 6 YEARS
     Route: 065

REACTIONS (2)
  - Cutaneous calcification [Recovering/Resolving]
  - Treatment failure [Recovering/Resolving]
